FAERS Safety Report 14264325 (Version 1)
Quarter: 2017Q4

REPORT INFORMATION
  Report Type: Spontaneous
  Country: GB (occurrence: GB)
  Receive Date: 20171208
  Receipt Date: 20171208
  Transmission Date: 20180321
  Serious: No
  Sender: FDA-Public Use
  Company Number: GB-JAZZ-2017-GB-014036

PATIENT
  Age: 12 Year
  Sex: Female
  Weight: 56.69 kg

DRUGS (1)
  1. XYREM [Suspect]
     Active Substance: SODIUM OXYBATE
     Indication: PRODUCT USED FOR UNKNOWN INDICATION
     Dosage: 4.5 G, BID
     Route: 048

REACTIONS (6)
  - Feeling drunk [Unknown]
  - Sleep-related eating disorder [Unknown]
  - Injury [Unknown]
  - Crying [Unknown]
  - Somnolence [Unknown]
  - Product use issue [Unknown]
